FAERS Safety Report 16577304 (Version 2)
Quarter: 2019Q3

REPORT INFORMATION
  Report Type: Spontaneous
  Country: US (occurrence: US)
  Receive Date: 20190716
  Receipt Date: 20190716
  Transmission Date: 20191004
  Serious: Yes (Other)
  Sender: FDA-Public Use
  Company Number: US-GILEAD-2019-0418228

PATIENT
  Sex: Female

DRUGS (1)
  1. TRUVADA [Suspect]
     Active Substance: EMTRICITABINE\TENOFOVIR DISOPROXIL FUMARATE
     Indication: HIV INFECTION
     Dosage: UNK
     Route: 048

REACTIONS (17)
  - Toxicity to various agents [Unknown]
  - Product label issue [Unknown]
  - Balance disorder [Unknown]
  - Pain [Not Recovered/Not Resolved]
  - Decreased activity [Not Recovered/Not Resolved]
  - Mental disorder [Not Recovered/Not Resolved]
  - Emotional distress [Not Recovered/Not Resolved]
  - Mood swings [Not Recovered/Not Resolved]
  - Loss of consciousness [Recovered/Resolved]
  - Osteonecrosis [Unknown]
  - Wheelchair user [Unknown]
  - Arthropathy [Unknown]
  - Bone density decreased [Unknown]
  - Osteopenia [Unknown]
  - Product complaint [Unknown]
  - Post procedural complication [Recovered/Resolved]
  - Arthralgia [Not Recovered/Not Resolved]

NARRATIVE: CASE EVENT DATE: 2009
